FAERS Safety Report 4328790-7 (Version None)
Quarter: 2004Q1

REPORT INFORMATION
  Report Type: 
  Country: None (occurrence: None)
  Receive Date: 20040329
  Receipt Date: 20040216
  Transmission Date: 20041129
  Serious: No
  Sender: FDA-Public Use
  Company Number: 04P-163-0250412-00

PATIENT
  Age: 69 Year
  Sex: Female
  Weight: 51.2565 kg

DRUGS (7)
  1. HUMIRA [Suspect]
     Indication: RHEUMATOID ARTHRITIS
     Dosage: 40 MG, 1 IN 2 WK, SUBCUTANEOUS
     Route: 058
     Dates: start: 20031218
  2. PREDNISONE [Concomitant]
  3. OXYCODONE [Concomitant]
  4. LISINOPRIL [Concomitant]
  5. FOLIC ACID [Concomitant]
  6. NABUMETONE [Concomitant]
  7. ALPRAZOLAM [Concomitant]

REACTIONS (2)
  - DEHYDRATION [None]
  - INFLUENZA LIKE ILLNESS [None]
